FAERS Safety Report 6992295-5 (Version None)
Quarter: 2010Q3

REPORT INFORMATION
  Report Type: 
  Country: None (occurrence: None)
  Receive Date: 20100915
  Receipt Date: 20100915
  Transmission Date: 20110219
  Serious: Yes (Other)
  Sender: FDA-Public Use
  Company Number: None

PATIENT
  Sex: Male
  Weight: 80 kg

DRUGS (4)
  1. MYCOPHENOLATE MOFETIL [Suspect]
     Indication: IMMUNOSUPPRESSION
     Dosage: 1000 ORALLY TWICE DAILY
     Route: 048
     Dates: start: 20100520
  2. MYCOPHENOLATE MOFETIL [Suspect]
  3. TACROLIMUS [Concomitant]
  4. PREDNISONE [Concomitant]

REACTIONS (1)
  - LABORATORY TEST ABNORMAL [None]
